FAERS Safety Report 13815526 (Version 1)
Quarter: 2017Q3

REPORT INFORMATION
  Report Type: Spontaneous
  Country: GB (occurrence: AU)
  Receive Date: 20170731
  Receipt Date: 20170731
  Transmission Date: 20171127
  Serious: Yes (Disabling)
  Sender: FDA-Public Use
  Company Number: GB-PFIZER INC-1522818

PATIENT
  Age: 51 Year
  Sex: Male

DRUGS (6)
  1. ZOSTRIX /00899201/ [Concomitant]
     Indication: NEUROPATHY PERIPHERAL
     Dosage: 0.75 %, FREQ: 4 DAY ; INTERVAL: 1
     Route: 061
     Dates: start: 20120121
  2. FLUOROURACIL. [Suspect]
     Active Substance: FLUOROURACIL
     Dosage: 1300 MG,  FREQ: 1 WEEK; INTERVAL: 2
     Route: 041
     Dates: start: 20050512, end: 20051004
  3. FLUOROURACIL. [Suspect]
     Active Substance: FLUOROURACIL
     Indication: COLON CANCER
     Dosage: 860 MG, FREQ: 1 WEEK; INTERVAL: 2
     Route: 040
     Dates: start: 20050512, end: 20051004
  4. OXALIPLATIN. [Suspect]
     Active Substance: OXALIPLATIN
     Indication: COLON CANCER
     Dosage: 180 MG, FREQ: 1 WEEK; INTERVAL: 2
     Route: 042
     Dates: start: 20050512, end: 20051004
  5. CALCIUM FOLINATE [Suspect]
     Active Substance: LEUCOVORIN CALCIUM
     Indication: COLON CANCER
     Dosage: 180 MG, FREQ: 1 WEEK; INTERVAL: 2
     Route: 042
     Dates: start: 20050512, end: 20051004
  6. OXALIPLATIN. [Suspect]
     Active Substance: OXALIPLATIN
     Dosage: 160 MG, FREQ: 1 WEEK; INTERVAL: 2
     Route: 042
     Dates: start: 20051017, end: 20051017

REACTIONS (2)
  - Neuropathy peripheral [Not Recovered/Not Resolved]
  - Erectile dysfunction [Not Recovered/Not Resolved]
